FAERS Safety Report 6028236-7 (Version None)
Quarter: 2008Q4

REPORT INFORMATION
  Report Type: 
  Country: None (occurrence: None)
  Receive Date: 20081231
  Receipt Date: 20081231
  Transmission Date: 20090506
  Serious: Yes (Hospitalization)
  Sender: FDA-Public Use
  Company Number: None

PATIENT
  Age: 47 Year
  Sex: Male
  Weight: 67.7 kg

DRUGS (1)
  1. BENZTROPINE MESYLATE [Suspect]
     Indication: EXTRAPYRAMIDAL DISORDER
     Dosage: 1 MG TID PO
     Route: 048
     Dates: start: 20081117, end: 20081201

REACTIONS (5)
  - CONFUSIONAL STATE [None]
  - LETHARGY [None]
  - MENTAL STATUS CHANGES [None]
  - OVERDOSE [None]
  - SEDATION [None]
